FAERS Safety Report 9706720 (Version 2)
Quarter: 2013Q4

REPORT INFORMATION
  Report Type: Spontaneous
  Country: US (occurrence: US)
  Receive Date: 20131125
  Receipt Date: 20131125
  Transmission Date: 20140711
  Serious: Yes (Other)
  Sender: FDA-Public Use
  Company Number: US-ENDO PHARMACEUTICALS INC.-OPCR20130292

PATIENT
  Age: 48 Year
  Sex: Male

DRUGS (2)
  1. OPANA ER 20MG [Suspect]
     Indication: BACK PAIN
     Dosage: 20MG
     Route: 048
     Dates: end: 20130707
  2. OPANA ER 20MG [Suspect]
     Route: 048

REACTIONS (2)
  - Hepatic cancer [Unknown]
  - Withdrawal syndrome [Not Recovered/Not Resolved]
